FAERS Safety Report 8580822-6 (Version None)
Quarter: 2012Q3

REPORT INFORMATION
  Report Type: 
  Country: None (occurrence: None)
  Receive Date: 20120809
  Receipt Date: 20120730
  Transmission Date: 20120928
  Serious: Yes (Other)
  Sender: FDA-Public Use
  Company Number: GB-VERTEX PHARMACEUTICALS INC.-000000000000000948

PATIENT
  Sex: Male

DRUGS (3)
  1. PEGINTERFERON ALFA-2A [Concomitant]
     Indication: HEPATITIS C
     Route: 058
     Dates: start: 20120528
  2. RIBAVIRIN [Concomitant]
     Indication: HEPATITIS C
     Route: 048
     Dates: start: 20120528
  3. INCIVO [Suspect]
     Indication: HEPATITIS C
     Dosage: DOSAGE FORM: TABLET
     Route: 048
     Dates: start: 20120528

REACTIONS (13)
  - DYSPNOEA [None]
  - PAIN IN EXTREMITY [None]
  - PROCTALGIA [None]
  - PAIN [None]
  - FATIGUE [None]
  - NAUSEA [None]
  - INSOMNIA [None]
  - DRY MOUTH [None]
  - HEADACHE [None]
  - ANORECTAL DISCOMFORT [None]
  - RECTAL TENESMUS [None]
  - RECTAL HAEMORRHAGE [None]
  - INFLUENZA [None]
